FAERS Safety Report 18642755 (Version 1)
Quarter: 2020Q4

REPORT INFORMATION
  Report Type: Spontaneous
  Country: FR (occurrence: FR)
  Receive Date: 20201221
  Receipt Date: 20201221
  Transmission Date: 20210114
  Serious: Yes (Hospitalization, Other)
  Sender: FDA-Public Use
  Company Number: FR-009507513-2012FRA006194

PATIENT
  Age: 59 Year
  Sex: Male

DRUGS (3)
  1. DAKLINZA [Concomitant]
     Active Substance: DACLATASVIR
     Dosage: UNK
     Dates: start: 20140204, end: 20140722
  2. RIBAVIRIN. [Suspect]
     Active Substance: RIBAVIRIN
     Dosage: UNK
     Dates: start: 20140204, end: 20140722
  3. SOVALDI [Concomitant]
     Active Substance: SOFOSBUVIR
     Dosage: UNK
     Dates: start: 20140204, end: 20140722

REACTIONS (3)
  - Adenocarcinoma pancreas [Not Recovered/Not Resolved]
  - Cholangitis [Not Recovered/Not Resolved]
  - Duodenal stenosis [Not Recovered/Not Resolved]

NARRATIVE: CASE EVENT DATE: 20180801
